FAERS Safety Report 9091356 (Version 1)
Quarter: 2013Q1

REPORT INFORMATION
  Report Type: Report from Study
  Country: US (occurrence: US)
  Receive Date: 20130201
  Receipt Date: 20130201
  Transmission Date: 20140127
  Serious: No
  Sender: FDA-Public Use
  Company Number: US-ABBOTT-12P-163-1019912-00

PATIENT
  Age: 13 Year
  Sex: Female
  Weight: 61.29 kg

DRUGS (3)
  1. HUMIRA [Suspect]
     Indication: UVEITIS
     Route: 030
     Dates: start: 20121207
  2. METHOTREXATE SODIUM [Concomitant]
     Indication: UVEITIS
     Dosage: WEEKLY
  3. FOLIC ACID [Concomitant]
     Indication: VITAMIN SUPPLEMENTATION
     Dosage: DAILY

REACTIONS (1)
  - Off label use [Not Recovered/Not Resolved]
